FAERS Safety Report 9018814 (Version 2)
Quarter: 2013Q2

REPORT INFORMATION
  Report Type: Spontaneous
  Country: US (occurrence: US)
  Receive Date: 20130118
  Receipt Date: 20130507
  Transmission Date: 20140414
  Serious: Yes (Other)
  Sender: FDA-Public Use
  Company Number: US-ABBOTT-13P-163-1034028-00

PATIENT
  Age: 51 Year
  Sex: Female
  Weight: 80.36 kg

DRUGS (5)
  1. HUMIRA [Suspect]
     Indication: CROHN^S DISEASE
     Dates: start: 2006, end: 20121222
  2. UNNAMED NARCOTIC [Suspect]
     Indication: PAIN
     Dates: start: 201211, end: 20121208
  3. UNNAMED BIRTH CONTROL PILL [Concomitant]
     Indication: PRODUCT USED FOR UNKNOWN INDICATION
  4. TOPROL [Concomitant]
     Indication: PRODUCT USED FOR UNKNOWN INDICATION
  5. ULTRAM [Concomitant]
     Indication: PRODUCT USED FOR UNKNOWN INDICATION

REACTIONS (4)
  - Convulsion [Recovered/Resolved]
  - Road traffic accident [Recovered/Resolved]
  - Convulsion [Recovered/Resolved]
  - Aggression [Recovered/Resolved]
